FAERS Safety Report 9199739 (Version 1)
Quarter: 2013Q1

REPORT INFORMATION
  Report Type: Spontaneous
  Country: US (occurrence: None)
  Receive Date: 20130328
  Receipt Date: 20130328
  Transmission Date: 20140127
  Serious: Yes (Death, Life-Threatening)
  Sender: FDA-Public Use
  Company Number: None

PATIENT
  Age: 52 Year
  Sex: Male
  Weight: 139.9 kg

DRUGS (1)
  1. ISOVUE-M 300 [Suspect]
     Indication: SPINAL MYELOGRAM
     Route: 038
     Dates: start: 20120205, end: 20120205

REACTIONS (9)
  - Headache [None]
  - Sensation of pressure [None]
  - Nausea [None]
  - Vomiting [None]
  - Confusional state [None]
  - Mental status changes [None]
  - Convulsion [None]
  - Hypotension [None]
  - Brain death [None]
